FAERS Safety Report 7568598-2 (Version None)
Quarter: 2011Q2

REPORT INFORMATION
  Report Type: 
  Country: None (occurrence: None)
  Receive Date: 20110623
  Receipt Date: 20110609
  Transmission Date: 20111010
  Serious: Yes (Other)
  Sender: FDA-Public Use
  Company Number: PT-JNJFOC-20110600744

PATIENT
  Age: 47 Year
  Sex: Female

DRUGS (7)
  1. INFLIXIMAB, RECOMBINANT [Suspect]
     Route: 042
  2. METHOTREXATE [Concomitant]
     Indication: SARCOIDOSIS
  3. INFLIXIMAB, RECOMBINANT [Suspect]
     Indication: SARCOIDOSIS
     Route: 042
  4. PREDNISONE [Concomitant]
     Indication: SARCOIDOSIS
  5. INFLIXIMAB, RECOMBINANT [Suspect]
     Route: 042
  6. INFLIXIMAB, RECOMBINANT [Suspect]
     Route: 042
  7. INFLIXIMAB, RECOMBINANT [Suspect]
     Route: 042

REACTIONS (3)
  - ORGANISING PNEUMONIA [None]
  - ANTIPHOSPHOLIPID ANTIBODIES [None]
  - TRANSIENT ISCHAEMIC ATTACK [None]
